FAERS Safety Report 8810665 (Version 1)
Quarter: 2012Q4

REPORT INFORMATION
  Report Type: Spontaneous
  Country: US (occurrence: None)
  Receive Date: 20120920
  Receipt Date: 20120920
  Transmission Date: 20130627
  Serious: Yes (Hospitalization)
  Sender: FDA-Public Use
  Company Number: US-2012-11374

PATIENT
  Age: 82 Year
  Sex: Female
  Weight: 60.8 kg

DRUGS (3)
  1. SAMSCA (TOLVAPTAN) TABLET [Suspect]
     Indication: SODIUM LOW
     Route: 048
     Dates: start: 201208
  2. POTASSIUM CHLORIDE [Suspect]
     Dates: start: 201208
  3. LASIX (FUROSEMIDE) [Concomitant]

REACTIONS (4)
  - Skin exfoliation [None]
  - Glossodynia [None]
  - Oropharyngeal pain [None]
  - Oxygen saturation decreased [None]
